FAERS Safety Report 22293652 (Version 1)
Quarter: 2023Q2

REPORT INFORMATION
  Report Type: Spontaneous
  Country: AU (occurrence: AU)
  Receive Date: 20230508
  Receipt Date: 20230508
  Transmission Date: 20230722
  Serious: Yes (Other)
  Sender: FDA-Public Use
  Company Number: AU-drreddys-SPO/AUS/23/0164707

PATIENT
  Age: 85 Year
  Sex: Female

DRUGS (10)
  1. PREGABALIN [Suspect]
     Active Substance: PREGABALIN
     Indication: Product used for unknown indication
  2. BISOPROLOL [Suspect]
     Active Substance: BISOPROLOL
     Indication: Product used for unknown indication
  3. METHADONE HYDROCHLORIDE [Suspect]
     Active Substance: METHADONE HYDROCHLORIDE
     Indication: Product used for unknown indication
  4. TAPENTADOL [Suspect]
     Active Substance: TAPENTADOL
     Indication: Product used for unknown indication
  5. MIDODRINE HYDROCHLORIDE [Suspect]
     Active Substance: MIDODRINE HYDROCHLORIDE
     Indication: Product used for unknown indication
  6. BLACKMORES MAGMIN- AUST L [Concomitant]
     Indication: Product used for unknown indication
  7. MOVICOL [Concomitant]
     Active Substance: POLYETHYLENE GLYCOL 3350\POTASSIUM CHLORIDE\SODIUM BICARBONATE\SODIUM CHLORIDE
     Indication: Product used for unknown indication
  8. MINERALS\VITAMINS [Concomitant]
     Active Substance: MINERALS\VITAMINS
     Indication: Product used for unknown indication
  9. ASPIRIN [Concomitant]
     Active Substance: ASPIRIN
     Indication: Product used for unknown indication
  10. DENOSUMAB [Concomitant]
     Active Substance: DENOSUMAB
     Indication: Product used for unknown indication

REACTIONS (17)
  - Hypothyroidism [Unknown]
  - Acute myocardial infarction [Unknown]
  - Atrial fibrillation [Unknown]
  - Cardiac amyloidosis [Unknown]
  - Cardiac failure congestive [Unknown]
  - Ankle fracture [Unknown]
  - Cholecystectomy [Unknown]
  - Chronic obstructive pulmonary disease [Unknown]
  - Iron deficiency [Unknown]
  - Orthostatic hypotension [Unknown]
  - Osteoporosis [Unknown]
  - Thyroidectomy [Unknown]
  - Troponin I increased [Unknown]
  - Fall [Unknown]
  - Blood creatine increased [Unknown]
  - Dizziness [Unknown]
  - Off label use [Unknown]
